FAERS Safety Report 21415326 (Version 3)
Quarter: 2022Q4

REPORT INFORMATION
  Report Type: Spontaneous
  Country: IT (occurrence: None)
  Receive Date: 20221006
  Receipt Date: 20221021
  Transmission Date: 20230112
  Serious: Yes (Hospitalization)
  Sender: FDA-Public Use
  Company Number: None

PATIENT
  Age: 35 Year
  Sex: Male
  Weight: 90 kg

DRUGS (1)
  1. OCREVUS [Suspect]
     Active Substance: OCRELIZUMAB
     Indication: Product used for unknown indication
     Dosage: APPROXIMATELY EVERY 6 MONTHS, THE TREATING NEUROLOGIST HAD POSTPONED THE INFUSION TO JULY 2022 FOLLO
     Route: 065
     Dates: start: 20200110

REACTIONS (6)
  - Encephalitis viral [Recovered/Resolved]
  - Hypogammaglobulinaemia [Unknown]
  - Confusional state [Recovered/Resolved]
  - Nystagmus [Recovered/Resolved]
  - Pyrexia [Recovered/Resolved]
  - Ataxia [Recovered/Resolved]

NARRATIVE: CASE EVENT DATE: 20220819
